FAERS Safety Report 12862862 (Version 2)
Quarter: 2017Q1

REPORT INFORMATION
  Report Type: Spontaneous
  Country: US (occurrence: US)
  Receive Date: 20161019
  Receipt Date: 20170119
  Transmission Date: 20170428
  Serious: No
  Sender: FDA-Public Use
  Company Number: US-009507513-1610USA006118

PATIENT
  Sex: Female

DRUGS (1)
  1. NEXPLANON [Suspect]
     Active Substance: ETONOGESTREL
     Dosage: 1 ROD UP TO 3 YEARS
     Route: 059
     Dates: start: 20140528

REACTIONS (4)
  - Implant site pain [Unknown]
  - Vaginal haemorrhage [Unknown]
  - Device breakage [Unknown]
  - Device expulsion [Unknown]

NARRATIVE: CASE EVENT DATE: 201410
